FAERS Safety Report 5610452-7 (Version None)
Quarter: 2008Q1

REPORT INFORMATION
  Report Type: 
  Country: None (occurrence: None)
  Receive Date: 20080128
  Receipt Date: 20080117
  Transmission Date: 20080703
  Serious: Yes (Hospitalization, Other)
  Sender: FDA-Public Use
  Company Number: 231387J07USA

PATIENT
  Age: 15 Year
  Sex: Female
  Weight: 49.8957 kg

DRUGS (3)
  1. REBIF [Suspect]
     Indication: OFF LABEL USE
     Dosage: 44 MCG, 3 IN 1 WEEKS, SUBCUTANEOUS
     Route: 058
     Dates: start: 20060529, end: 20070901
  2. TOPAMAX [Concomitant]
  3. ZOLOFT [Concomitant]

REACTIONS (5)
  - ASTROCYTOMA [None]
  - BLINDNESS [None]
  - BLINDNESS TRANSIENT [None]
  - BRAIN NEOPLASM [None]
  - GLIOMA [None]
